FAERS Safety Report 10175485 (Version 1)
Quarter: 2014Q2

REPORT INFORMATION
  Report Type: Report from Study
  Country: GB (occurrence: GB)
  Receive Date: 20140516
  Receipt Date: 20140516
  Transmission Date: 20141212
  Serious: Yes (Hospitalization)
  Sender: FDA-Public Use
  Company Number: GB-AMGEN INC.-GBRCT2014035736

PATIENT
  Age: 43 Year
  Sex: Female
  Weight: 112.2 kg

DRUGS (10)
  1. ETANERCEPT [Suspect]
     Indication: PRODUCT USED FOR UNKNOWN INDICATION
     Dosage: 50 MG, 2 TIMES/WK
     Route: 065
     Dates: start: 20111001
  2. THYROXINE [Concomitant]
     Dosage: UNK
     Dates: start: 20080401
  3. RAMIPRIL [Concomitant]
     Dosage: UNK
     Dates: start: 20080401
  4. ROSUVASTATIN [Concomitant]
     Dosage: UNK
     Dates: start: 20080401
  5. FOLIC ACID [Concomitant]
     Dosage: UNK
     Dates: start: 20110401
  6. CITALOPRAM [Concomitant]
     Dosage: UNK
     Dates: start: 19900402
  7. METHOTREXATE [Concomitant]
     Dosage: UNK
     Dates: start: 20130108
  8. DOVOBET [Concomitant]
     Dosage: UNK
     Dates: start: 20130109
  9. XAMIOL [Concomitant]
     Dosage: UNK
     Dates: start: 20130118
  10. CALCIPOTRIOL [Concomitant]
     Dosage: UNK
     Dates: start: 20130118

REACTIONS (1)
  - Diverticulitis [Recovered/Resolved]
